FAERS Safety Report 22231056 (Version 1)
Quarter: 2023Q2

REPORT INFORMATION
  Report Type: Spontaneous
  Country: US (occurrence: None)
  Receive Date: 20230420
  Receipt Date: 20230420
  Transmission Date: 20230722
  Serious: No
  Sender: FDA-Public Use
  Company Number: US-ROCHE-3162416

PATIENT
  Sex: Female

DRUGS (9)
  1. KADCYLA [Suspect]
     Active Substance: ADO-TRASTUZUMAB EMTANSINE
     Indication: Hepatic function abnormal
     Route: 042
     Dates: start: 20170505
  2. KADCYLA [Suspect]
     Active Substance: ADO-TRASTUZUMAB EMTANSINE
     Dosage: 6/MAR/2018 DOSE HOLD
     Route: 042
     Dates: start: 20170526
  3. KADCYLA [Suspect]
     Active Substance: ADO-TRASTUZUMAB EMTANSINE
     Route: 042
     Dates: start: 20180410
  4. KADCYLA [Suspect]
     Active Substance: ADO-TRASTUZUMAB EMTANSINE
     Dosage: EVERY 4-5 WEEKS
     Route: 042
     Dates: start: 20191001
  5. KADCYLA [Suspect]
     Active Substance: ADO-TRASTUZUMAB EMTANSINE
     Dosage: 06/MAR/2018, 13/NOV/2018, 17/SEP/2019 TREATMENT HOLD FOR 1 DOSE
     Route: 042
     Dates: start: 20180410
  6. KADCYLA [Suspect]
     Active Substance: ADO-TRASTUZUMAB EMTANSINE
     Dosage: EVERY 4-5 WEEKS?ON 03/NOV/2020, 08/DEC/2020 TREATMET HOLD FOR 1 DOSE
     Route: 042
     Dates: start: 20191001
  7. KADCYLA [Suspect]
     Active Substance: ADO-TRASTUZUMAB EMTANSINE
     Dosage: EVERY 4-5 WEEKS?ON 03/NOV/2020, 08/DEC/2020 TREATMET HOLD FOR 1 DOSE
     Route: 042
     Dates: start: 20220830
  8. ACETAMINOPHEN [Concomitant]
     Active Substance: ACETAMINOPHEN
     Dates: start: 20171107
  9. LETROZOLE [Concomitant]
     Active Substance: LETROZOLE
     Dates: start: 20220415

REACTIONS (2)
  - Liver function test increased [Unknown]
  - Off label use [Unknown]
